FAERS Safety Report 9523548 (Version 1)
Quarter: 2013Q3

REPORT INFORMATION
  Report Type: Report from Study
  Country: US (occurrence: US)
  Receive Date: 20130913
  Receipt Date: 20130913
  Transmission Date: 20140515
  Serious: Yes (Other)
  Sender: FDA-Public Use
  Company Number: US-US-EMD SERONO, INC.-7236529

PATIENT
  Sex: Female

DRUGS (2)
  1. REBIF [Suspect]
     Indication: MULTIPLE SCLEROSIS
     Route: 058
     Dates: start: 20070817
  2. PIROXICAM [Concomitant]
     Indication: PREMEDICATION

REACTIONS (7)
  - Meningioma [Not Recovered/Not Resolved]
  - Acoustic neuroma [Not Recovered/Not Resolved]
  - Skin mass [Not Recovered/Not Resolved]
  - Adverse drug reaction [Unknown]
  - Influenza like illness [Unknown]
  - Headache [Not Recovered/Not Resolved]
  - Injection site mass [Unknown]
